FAERS Safety Report 6448666-9 (Version None)
Quarter: 2009Q4

REPORT INFORMATION
  Report Type: 
  Country: None (occurrence: None)
  Receive Date: 20091120
  Receipt Date: 20091110
  Transmission Date: 20100525
  Serious: Yes (Hospitalization, Other)
  Sender: FDA-Public Use
  Company Number: US-PFIZER INC-2009296370

PATIENT
  Sex: Male

DRUGS (1)
  1. CADUET [Suspect]

REACTIONS (4)
  - AORTIC DISSECTION RUPTURE [None]
  - AORTIC VALVE REPLACEMENT [None]
  - COMA [None]
  - HAEMORRHAGE [None]
